FAERS Safety Report 10237196 (Version 1)
Quarter: 2014Q1

REPORT INFORMATION
  Report Type: Spontaneous
  Country: US (occurrence: None)
  Receive Date: 20140306
  Receipt Date: 20140306
  Transmission Date: 20141002
  Serious: Yes (Other)
  Sender: FDA-Public Use
  Company Number: 163-21880-13125028

PATIENT
  Age: 58 Year
  Sex: Female
  Weight: 80.7 kg

DRUGS (5)
  1. REVLIMID ( LENALIDOMIDE) ( 25 MILLIGRAM, CAPSULES) [Suspect]
     Indication: PLASMA CELL MYELOMA
     Dosage: 25 MG, 21 IN 28 D, PO
     Route: 048
     Dates: start: 201109
  2. DEXAMETHASONE ( DEXAMETHASONE) ( TABLETS) [Concomitant]
  3. PROVENTIL HFA ( SALBUTAMOL) ( AEROSOL FOR INHALATION) [Concomitant]
  4. NORVASC ( AMLODIPINE BESILATE) (UNKNOWN) [Concomitant]
  5. LASIX ( FUROSEMIDE) (UNKNOWN) [Concomitant]

REACTIONS (1)
  - Deep vein thrombosis [None]
